FAERS Safety Report 6134952-9 (Version None)
Quarter: 2009Q1

REPORT INFORMATION
  Report Type: 
  Country: None (occurrence: None)
  Receive Date: 20090325
  Receipt Date: 20090309
  Transmission Date: 20090719
  Serious: Yes (Other)
  Sender: FDA-Public Use
  Company Number: 000526

PATIENT
  Sex: Female

DRUGS (3)
  1. VIMPAT [Suspect]
     Indication: EPILEPSY
     Dosage: (200 MG TID)
     Dates: start: 20080101
  2. FRISIUM (FRISIUM) (NOT SPECIFIED) [Suspect]
  3. LAMICTAL [Suspect]

REACTIONS (2)
  - BLISTER [None]
  - CHEMICAL BURN OF SKIN [None]
